FAERS Safety Report 8408618 (Version 2)
Quarter: 2013Q1

REPORT INFORMATION
  Report Type: Spontaneous
  Country: US (occurrence: US)
  Receive Date: 20120216
  Receipt Date: 20130207
  Transmission Date: 20140127
  Serious: Yes (Hospitalization, Other)
  Sender: FDA-Public Use
  Company Number: US-JNJFOC-20120207282

PATIENT
  Sex: Male

DRUGS (2)
  1. LEVAQUIN [Suspect]
     Indication: PROSTATITIS
     Route: 048
     Dates: start: 2005, end: 2009
  2. LEVAQUIN [Suspect]
     Indication: PROSTATITIS
     Route: 048
     Dates: start: 200302

REACTIONS (3)
  - Joint injury [Unknown]
  - Muscle rupture [Unknown]
  - Rotator cuff syndrome [Unknown]
